FAERS Safety Report 9006159 (Version 1)
Quarter: 2013Q1

REPORT INFORMATION
  Report Type: Spontaneous
  Country: US (occurrence: US)
  Receive Date: 20130110
  Receipt Date: 20130110
  Transmission Date: 20140127
  Serious: Yes (Disabling)
  Sender: FDA-Public Use
  Company Number: US-009507513-0907USA03587

PATIENT
  Age: 7 Year
  Sex: Male
  Weight: 40.37 kg

DRUGS (2)
  1. SINGULAIR [Suspect]
     Indication: MULTIPLE ALLERGIES
     Dosage: 1 DF, QPM
     Route: 048
     Dates: start: 20070101, end: 20071229
  2. SINGULAIR [Suspect]
     Dosage: 1 UNK, QD
     Route: 048
     Dates: start: 20080101, end: 20080501

REACTIONS (1)
  - Excessive eye blinking [Unknown]
